FAERS Safety Report 7229359-7 (Version None)
Quarter: 2011Q1

REPORT INFORMATION
  Report Type: 
  Country: None (occurrence: None)
  Receive Date: 20110117
  Receipt Date: 20101222
  Transmission Date: 20110831
  Serious: Yes (Hospitalization)
  Sender: FDA-Public Use
  Company Number: A0801465A

PATIENT
  Age: 59 Year
  Sex: Male
  Weight: 109.1 kg

DRUGS (6)
  1. AMARYL [Concomitant]
     Dates: end: 20070317
  2. METFORMIN HCL [Concomitant]
  3. NORVASC [Concomitant]
  4. BENICAR [Concomitant]
  5. LIPITOR [Concomitant]
  6. AVANDIA [Suspect]
     Indication: DIABETES MELLITUS
     Dosage: 8MG PER DAY
     Route: 048
     Dates: start: 20000101, end: 20070317

REACTIONS (2)
  - CARDIAC FAILURE CONGESTIVE [None]
  - MYOCARDIAL INFARCTION [None]
